FAERS Safety Report 4403788-9 (Version None)
Quarter: 2004Q3

REPORT INFORMATION
  Report Type: 
  Country: None (occurrence: None)
  Receive Date: 20040721
  Receipt Date: 20030130
  Transmission Date: 20050211
  Serious: Yes (Hospitalization, Other)
  Sender: FDA-Public Use
  Company Number: PHEH2003US01128

PATIENT
  Age: 63 Year
  Sex: Female

DRUGS (14)
  1. DECADRON [Concomitant]
  2. TAMOXIFEN [Concomitant]
     Dosage: 20 MG, QD
     Dates: start: 19980401, end: 20000601
  3. ZINECARD [Concomitant]
     Dosage: UNK, UNK
     Dates: start: 19981101
  4. AROMASIN [Concomitant]
     Dosage: 20 MG, UNK
     Dates: start: 20020801, end: 20021201
  5. AREDIA [Suspect]
     Indication: METASTASES TO BONE
     Dosage: 90 MG,Q4WKS
     Route: 042
     Dates: start: 19980201, end: 20020301
  6. TAXOL [Concomitant]
     Indication: BREAST CANCER
     Dosage: 60 MG/M2, UNK
     Dates: end: 20000401
  7. TAXOL [Concomitant]
     Dosage: 80 MG/M2, UNK
     Route: 042
     Dates: start: 19981101
  8. TAXOTERE [Concomitant]
     Indication: BREAST CANCER
     Dosage: 75 MG/M2/Q3WK
     Dates: start: 19980401
  9. TAXOTERE [Concomitant]
     Dosage: 100 MG/M2/Q3WKS
     Route: 042
     Dates: start: 19980201, end: 19980401
  10. ADRIAMYCIN + CYCLOPHOSPHAMIDE [Concomitant]
     Indication: BREAST CANCER
     Dates: start: 19980501, end: 19981001
  11. ZOMETA [Suspect]
     Indication: METASTASES TO BONE
     Dosage: 4 MG, Q4WKS
     Route: 042
     Dates: start: 20020401, end: 20021201
  12. XELODA [Concomitant]
     Indication: BREAST CANCER
     Dosage: UNK, UNK
     Route: 048
     Dates: start: 20021201
  13. DURAGESIC [Concomitant]
  14. FEMARA [Concomitant]
     Dates: start: 20020101, end: 20020801

REACTIONS (11)
  - BACTERIAL INFECTION [None]
  - BONE FRAGMENTATION AROUND IMPLANT [None]
  - FISTULA [None]
  - IMPAIRED HEALING [None]
  - NEOPLASM [None]
  - OSTECTOMY [None]
  - OSTEOMYELITIS [None]
  - OSTEONECROSIS [None]
  - POST PROCEDURAL COMPLICATION [None]
  - TOOTH EXTRACTION [None]
  - WOUND DEBRIDEMENT [None]
